FAERS Safety Report 7225199 (Version 2)
Quarter: 2013Q2

REPORT INFORMATION
  Report Type: Spontaneous
  Country: US (occurrence: US)
  Receive Date: 20091221
  Receipt Date: 20130607
  Transmission Date: 20140414
  Serious: Yes (Other)
  Sender: FDA-Public Use
  Company Number: US-ASTRAZENECA-2009SE09600

PATIENT
  Age: 68 Year
  Sex: Female

DRUGS (11)
  1. CRESTOR [Suspect]
     Indication: BLOOD CHOLESTEROL ABNORMAL
     Route: 048
     Dates: start: 20080824, end: 20090728
  2. CRESTOR [Suspect]
     Indication: BLOOD CHOLESTEROL ABNORMAL
     Route: 048
     Dates: start: 2005
  3. LOVAZA [Suspect]
     Indication: BLOOD TRIGLYCERIDES INCREASED
     Route: 048
  4. LOPRESSOR [Concomitant]
  5. FLUTICASONE [Concomitant]
  6. HYDROCHLOROTHIAZIDE [Concomitant]
  7. BABY ASPIRIN [Concomitant]
  8. VITAMIN C [Concomitant]
  9. METFORMIN [Concomitant]
  10. ANTIBIOTIC [Concomitant]
  11. CHEMO TREATMENT [Concomitant]
     Dates: start: 201008, end: 201011

REACTIONS (17)
  - Lymphoma [Unknown]
  - Influenza like illness [Unknown]
  - Weight decreased [Unknown]
  - Cholelithiasis [Unknown]
  - Night sweats [Unknown]
  - Mobility decreased [Unknown]
  - Madarosis [Unknown]
  - Nail discolouration [Unknown]
  - Infection [Unknown]
  - Myalgia [Unknown]
  - Nausea [Unknown]
  - Muscle spasms [Unknown]
  - Gastric disorder [Unknown]
  - Headache [Unknown]
  - Insomnia [Unknown]
  - Myalgia [Unknown]
  - Drug hypersensitivity [Unknown]
